FAERS Safety Report 7204855-7 (Version None)
Quarter: 2010Q4

REPORT INFORMATION
  Report Type: 
  Country: None (occurrence: None)
  Receive Date: 20101230
  Receipt Date: 20101220
  Transmission Date: 20110411
  Serious: Yes (Death)
  Sender: FDA-Public Use
  Company Number: US-PFIZER INC-2010176397

PATIENT
  Age: 38 Year
  Sex: Male

DRUGS (3)
  1. LYRICA [Suspect]
  2. OXYCONTIN [Suspect]
     Dosage: 80 MG, EVERY 12 HOURS
  3. HYDROMORPHONE [Suspect]

REACTIONS (1)
  - DEATH [None]
